FAERS Safety Report 4684655-2 (Version None)
Quarter: 2005Q2

REPORT INFORMATION
  Report Type: 
  Country: None (occurrence: None)
  Receive Date: 20050603
  Receipt Date: 20050518
  Transmission Date: 20051028
  Serious: Yes (Other)
  Sender: FDA-Public Use
  Company Number: 2005US002507

PATIENT
  Age: 52 Year
  Sex: Female
  Weight: 62.6 kg

DRUGS (10)
  1. ALOXI [Suspect]
     Indication: PROPHYLAXIS OF NAUSEA AND VOMITING
     Dosage: 0.25 MG, SINGLE, IV DRIP
     Route: 041
     Dates: start: 20050209, end: 20050504
  2. DEXAMETHASONE [Concomitant]
  3. SODIUM CHLORIDE [Concomitant]
  4. ATIVAN [Concomitant]
  5. PREVACID [Concomitant]
  6. DEXTROSE INFUSION FLUID 5% (GLUCOSE) [Concomitant]
  7. MAGNESIUM (MAGNESIUM) [Concomitant]
  8. CALCIUM (CALCIUM) [Concomitant]
  9. OXALIPLATIN (OXALIPLATIN) [Concomitant]
  10. LEUCOVORIN CALCIUM [Concomitant]

REACTIONS (20)
  - BLOOD MAGNESIUM INCREASED [None]
  - BLOOD POTASSIUM INCREASED [None]
  - BURNING SENSATION [None]
  - CHILLS [None]
  - DYSARTHRIA [None]
  - DYSKINESIA [None]
  - FAECAL INCONTINENCE [None]
  - GAZE PALSY [None]
  - GLOSSODYNIA [None]
  - INFUSION RELATED REACTION [None]
  - LETHARGY [None]
  - MUSCLE RIGIDITY [None]
  - MUSCLE TWITCHING [None]
  - NAUSEA [None]
  - PALLOR [None]
  - PROCEDURAL COMPLICATION [None]
  - RESPIRATORY RATE INCREASED [None]
  - SIMPLE PARTIAL SEIZURES [None]
  - URINARY INCONTINENCE [None]
  - VOMITING [None]
